FAERS Safety Report 7111157-6 (Version None)
Quarter: 2010Q4

REPORT INFORMATION
  Report Type: 
  Country: None (occurrence: None)
  Receive Date: 20101103
  Receipt Date: 20101019
  Transmission Date: 20110411
  Serious: Yes (Other)
  Sender: FDA-Public Use
  Company Number: B0681648A

PATIENT
  Age: 50 Year
  Sex: Female

DRUGS (4)
  1. MELPHALON (FORMULATION UNKNOWN) (MELPHALAN) (GENERIC) [Suspect]
     Indication: MALIGNANT MELANOMA
     Dosage: 7.5 MG/LITRE
  2. DACTINOMYCIN [Concomitant]
  3. HEPARIN [Concomitant]
  4. PAPAVERINE [Concomitant]

REACTIONS (1)
  - DRUG TOXICITY [None]
